FAERS Safety Report 7230206-8 (Version None)
Quarter: 2011Q1

REPORT INFORMATION
  Report Type: 
  Country: None (occurrence: None)
  Receive Date: 20110118
  Receipt Date: 20110110
  Transmission Date: 20110831
  Serious: Yes (Other)
  Sender: FDA-Public Use
  Company Number: US-JNJFOC-20110102703

PATIENT
  Sex: Female
  Weight: 70.76 kg

DRUGS (8)
  1. AMBIEN [Concomitant]
     Indication: SLEEP DISORDER
     Dosage: AS NEEDED
     Route: 048
  2. DURAGESIC-50 [Suspect]
     Indication: ILL-DEFINED DISORDER
     Dosage: 100 UG/HR AND 25 UG/HR
     Route: 065
  3. LAMICTAL [Concomitant]
     Indication: CONVULSION
     Dosage: 2 IN THE MORNING, 1 EVERY EVENING
     Route: 048
  4. FENTANYL-100 [Suspect]
     Dosage: 100 UG/HR AND 25 UG/HR, NDC: 0781-7244-55 AND 0781-7111-55
     Route: 062
  5. TRIAZOLAM [Concomitant]
     Indication: SLEEP DISORDER
     Route: 048
  6. LORAZEPAM [Concomitant]
     Indication: CONVULSION PROPHYLAXIS
     Dosage: AS NEEDED
     Route: 048
  7. FENTANYL-100 [Suspect]
     Indication: PAIN
     Dosage: NDC: 0781-7244-55
     Route: 062
  8. PREMARIN [Concomitant]
     Indication: NUTRITIONAL SUPPORT
     Route: 048

REACTIONS (8)
  - FEELING ABNORMAL [None]
  - PAIN [None]
  - PRODUCT ADHESION ISSUE [None]
  - MALAISE [None]
  - THERAPY CESSATION [None]
  - MUSCULOSKELETAL PAIN [None]
  - VOMITING [None]
  - WRONG TECHNIQUE IN DRUG USAGE PROCESS [None]
